FAERS Safety Report 5344173-5 (Version None)
Quarter: 2007Q2

REPORT INFORMATION
  Report Type: 
  Country: None (occurrence: None)
  Receive Date: 20070604
  Receipt Date: 20070523
  Transmission Date: 20071010
  Serious: Yes (Death)
  Sender: FDA-Public Use
  Company Number: JP-ROCHE-481080

PATIENT
  Age: 18 Year
  Sex: Male
  Weight: 48 kg

DRUGS (16)
  1. CELLCEPT [Suspect]
     Indication: PROPHYLAXIS AGAINST GRAFT VERSUS HOST DISEASE
     Route: 048
     Dates: start: 20070123, end: 20070129
  2. CELLCEPT [Suspect]
     Route: 048
     Dates: start: 20070130
  3. FINIBAX [Suspect]
     Route: 042
     Dates: start: 20061106, end: 20070310
  4. ALPROSTADIL [Suspect]
     Indication: HEPATIC VEIN OCCLUSION
     Dosage: TRADE NAME REPORTED AS APISTANDIN, GENERIC NAME, ALPROSTADIL ALFADEX
     Route: 042
     Dates: start: 20061128, end: 20070303
  5. ACYCLOVIR [Suspect]
     Dosage: TRADE NAME REPORTED AS ACICLOVIN
     Route: 042
     Dates: start: 20061202, end: 20070310
  6. SOLU-CORTEF [Suspect]
     Indication: PYREXIA
     Route: 042
     Dates: start: 20070123, end: 20070126
  7. INOVAN [Suspect]
     Indication: POLYURIA
     Route: 042
     Dates: start: 20070125, end: 20070212
  8. DILTIAZEM HCL [Suspect]
     Indication: BLOOD PRESSURE DECREASED
     Route: 042
     Dates: start: 20070125, end: 20070126
  9. NEO-MINOPHAGEN C [Suspect]
     Indication: HEPATIC FUNCTION ABNORMAL
     Route: 042
     Dates: start: 20070125, end: 20070310
  10. FRAGMIN [Suspect]
     Indication: HEPATIC VEIN OCCLUSION
     Route: 042
     Dates: start: 20070125, end: 20070310
  11. URSO 250 [Concomitant]
     Route: 048
     Dates: start: 20061126, end: 20070310
  12. ZYVOX [Concomitant]
     Route: 042
     Dates: start: 20070109, end: 20070310
  13. VFEND [Concomitant]
     Route: 042
     Dates: start: 20070121, end: 20070219
  14. CIPROFLOXACIN [Concomitant]
     Route: 048
     Dates: start: 20070122, end: 20070310
  15. REBETOL [Concomitant]
     Route: 048
     Dates: start: 20070122, end: 20070302
  16. HALIZON [Concomitant]
     Route: 048
     Dates: start: 20070122, end: 20070213

REACTIONS (2)
  - ABDOMINAL DISTENSION [None]
  - ENDOTOXIC SHOCK [None]
